FAERS Safety Report 25665175 (Version 1)
Quarter: 2025Q3

REPORT INFORMATION
  Report Type: Spontaneous
  Country: US (occurrence: None)
  Receive Date: 20250809
  Receipt Date: 20250809
  Transmission Date: 20251020
  Serious: Yes (unspecified)
  Sender: FDA-CTU
  Company Number: None

PATIENT
  Age: 71 Year
  Sex: Male

DRUGS (2)
  1. LAMIVUDINE [Suspect]
     Active Substance: LAMIVUDINE
  2. JULUCA [Concomitant]
     Dosage: FREQUENCY : DAILY;?
     Route: 048

REACTIONS (3)
  - Therapy change [None]
  - Peripheral swelling [None]
  - Peripheral swelling [None]
